FAERS Safety Report 23702604 (Version 1)
Quarter: 2024Q2

REPORT INFORMATION
  Report Type: Spontaneous
  Country: US (occurrence: None)
  Receive Date: 20240402
  Receipt Date: 20240402
  Transmission Date: 20240716
  Serious: Yes (Life-Threatening)
  Sender: FDA-Public Use
  Company Number: None

PATIENT
  Age: 57 Year
  Sex: Male
  Weight: 122.92 kg

DRUGS (1)
  1. TRULICITY [Suspect]
     Active Substance: DULAGLUTIDE
     Indication: Type 2 diabetes mellitus
     Dosage: OTHER FREQUENCY : OTHER;?
     Route: 058
     Dates: start: 20230901, end: 20231124

REACTIONS (10)
  - Chest pain [None]
  - Cardiac arrest [None]
  - Hypotension [None]
  - Pyrexia [None]
  - Diarrhoea [None]
  - Blood potassium decreased [None]
  - Acute kidney injury [None]
  - White blood cell count abnormal [None]
  - Neutrophil count abnormal [None]
  - Medical device pain [None]

NARRATIVE: CASE EVENT DATE: 20231125
